FAERS Safety Report 8061575-7 (Version None)
Quarter: 2012Q1

REPORT INFORMATION
  Report Type: 
  Country: None (occurrence: None)
  Receive Date: 20120122
  Receipt Date: 20111221
  Transmission Date: 20120608
  Serious: Yes (Other)
  Sender: FDA-Public Use
  Company Number: PHHY2008BR22027

PATIENT
  Age: 52 Year
  Sex: Female
  Weight: 71 kg

DRUGS (3)
  1. TENORETIC 100 [Concomitant]
  2. SANDOSTATIN [Suspect]
     Indication: CARCINOID TUMOUR
     Dosage: 0.1 MG, TID
     Route: 058
     Dates: start: 20080601
  3. SANDOSTATIN LAR [Suspect]
     Indication: CARCINOID TUMOUR
     Dosage: 30 MG, UNK
     Route: 030
     Dates: start: 20080722

REACTIONS (11)
  - HEPATIC NEOPLASM [None]
  - HEPATIC ARTERY EMBOLISM [None]
  - PRURITUS [None]
  - MALAISE [None]
  - WRONG TECHNIQUE IN DRUG USAGE PROCESS [None]
  - DRUG INEFFECTIVE [None]
  - WEIGHT INCREASED [None]
  - SERUM SEROTONIN INCREASED [None]
  - NEEDLE ISSUE [None]
  - DRY SKIN [None]
  - SKIN EXFOLIATION [None]
